FAERS Safety Report 8050182-8 (Version None)
Quarter: 2012Q1

REPORT INFORMATION
  Report Type: 
  Country: None (occurrence: None)
  Receive Date: 20120117
  Receipt Date: 20120109
  Transmission Date: 20120608
  Serious: Yes (Hospitalization)
  Sender: FDA-Public Use
  Company Number: CA-MERCK-1201USA00988

PATIENT
  Sex: Female

DRUGS (1)
  1. TRUSOPT [Suspect]
     Route: 047

REACTIONS (1)
  - FOREIGN BODY IN EYE [None]
